FAERS Safety Report 7709833-7 (Version None)
Quarter: 2011Q3

REPORT INFORMATION
  Report Type: 
  Country: None (occurrence: None)
  Receive Date: 20110825
  Receipt Date: 20110822
  Transmission Date: 20111222
  Serious: Yes (Hospitalization, Disabling, Other)
  Sender: FDA-Public Use
  Company Number: US-MERCK-1105USA03426

PATIENT
  Age: 55 Year
  Sex: Female
  Weight: 49 kg

DRUGS (10)
  1. LISINOPRIL [Concomitant]
     Route: 048
  2. INSULIN [Concomitant]
     Route: 065
     Dates: start: 19770101
  3. DIOVAN [Concomitant]
     Route: 065
     Dates: start: 20020101
  4. CALCITRIOL [Concomitant]
     Route: 065
     Dates: start: 20060101
  5. [THERAPY UNSPECIFIED] [Concomitant]
     Route: 065
  6. FOSAMAX [Suspect]
     Indication: OSTEOPOROSIS
     Route: 048
     Dates: start: 20031031, end: 20070328
  7. FOSAMAX [Suspect]
     Indication: OSTEOPENIA
     Route: 048
     Dates: start: 20031031, end: 20070328
  8. BONIVA [Suspect]
     Indication: OSTEOPOROSIS
     Route: 048
     Dates: start: 20070427, end: 20100118
  9. FOSAMAX [Suspect]
     Route: 048
  10. LIPITOR [Concomitant]
     Route: 065
     Dates: start: 20030101

REACTIONS (48)
  - DRUG HYPERSENSITIVITY [None]
  - BLADDER PROLAPSE [None]
  - SCAR [None]
  - DYSPAREUNIA [None]
  - NASAL SEPTUM DEVIATION [None]
  - TOOTH IMPACTED [None]
  - VAGINAL HAEMORRHAGE [None]
  - HAEMORRHAGIC ANAEMIA [None]
  - UTERINE POLYP [None]
  - HYPERTHYROIDISM [None]
  - PLEURITIC PAIN [None]
  - CERVICITIS [None]
  - STRESS FRACTURE [None]
  - LEUKOCYTOSIS [None]
  - HYPERLIPIDAEMIA [None]
  - URINARY INCONTINENCE [None]
  - RECTOCELE [None]
  - ENDOSALPINGIOSIS [None]
  - OPEN WOUND [None]
  - NAUSEA [None]
  - ADNEXA UTERI MASS [None]
  - HYPERSENSITIVITY [None]
  - FOOT FRACTURE [None]
  - DIABETES MELLITUS INADEQUATE CONTROL [None]
  - DEAFNESS NEUROSENSORY [None]
  - REDUCED BLADDER CAPACITY [None]
  - ORTHOSTATIC INTOLERANCE [None]
  - LUNG DISORDER [None]
  - CHEST DISCOMFORT [None]
  - CONSTIPATION [None]
  - LOW TURNOVER OSTEOPATHY [None]
  - UTERINE DISORDER [None]
  - HORMONE LEVEL ABNORMAL [None]
  - GRANULOMA [None]
  - GOUT [None]
  - ADVERSE EVENT [None]
  - APPENDIX DISORDER [None]
  - IMPAIRED GASTRIC EMPTYING [None]
  - LEFT ATRIAL DILATATION [None]
  - OSTEOPOROSIS [None]
  - HYPOTENSION [None]
  - OVARIAN ATROPHY [None]
  - FEMUR FRACTURE [None]
  - CYSTOCELE [None]
  - HYPERTENSIVE NEPHROPATHY [None]
  - UTERINE LEIOMYOMA [None]
  - DIABETIC COMPLICATION [None]
  - RENAL FAILURE CHRONIC [None]
